FAERS Safety Report 5346001-0 (Version None)
Quarter: 2007Q2

REPORT INFORMATION
  Report Type: 
  Country: None (occurrence: None)
  Receive Date: 20070430
  Receipt Date: 20070315
  Transmission Date: 20071010
  Serious: No
  Sender: FDA-Public Use
  Company Number: 261721

PATIENT
  Age: 79 Year
  Sex: Male
  Weight: 89.3 kg

DRUGS (4)
  1. LEVEMIR [Suspect]
     Indication: DIABETES MELLITUS INSULIN-DEPENDENT
     Dosage: 20 IU, QD, SUBCUTANEOUS
     Route: 058
  2. NOVOLOG [Suspect]
     Indication: DIABETES MELLITUS INSULIN-DEPENDENT
     Dosage: 10 IU, QD, SUBCUTANEOUS
     Route: 058
  3. BENICAR [Concomitant]
  4. COUMADIN [Concomitant]

REACTIONS (1)
  - BLOOD GLUCOSE INCREASED [None]
